FAERS Safety Report 9226227 (Version 1)
Quarter: 2013Q2

REPORT INFORMATION
  Report Type: Spontaneous
  Country: US (occurrence: US)
  Receive Date: 20130411
  Receipt Date: 20130411
  Transmission Date: 20140414
  Serious: Yes (Hospitalization)
  Sender: FDA-Public Use
  Company Number: PHHY2012US031872

PATIENT
  Age: 59 Year
  Sex: Male

DRUGS (2)
  1. HYDROCHLOROTHIAZIDE [Suspect]
  2. VIAGRA [Suspect]

REACTIONS (7)
  - Spinal cord infarction [Unknown]
  - Paraplegia [Recovering/Resolving]
  - Muscular weakness [Unknown]
  - Movement disorder [Unknown]
  - Hypotension [Unknown]
  - Vision blurred [Unknown]
  - Dizziness [Unknown]
